FAERS Safety Report 23800213 (Version 1)
Quarter: 2024Q2

REPORT INFORMATION
  Report Type: Spontaneous
  Country: US (occurrence: None)
  Receive Date: 20240429
  Receipt Date: 20240429
  Transmission Date: 20240716
  Serious: Yes (Hospitalization, Disabling)
  Sender: FDA-Public Use
  Company Number: None

PATIENT
  Age: 45 Year
  Sex: Male
  Weight: 87.75 kg

DRUGS (3)
  1. LEVAQUIN [Suspect]
     Active Substance: LEVOFLOXACIN
     Indication: Epididymitis
     Dosage: FREQUENCY : DAILY;?
     Route: 048
     Dates: start: 20170101, end: 20200406
  2. GABAPENTIN [Concomitant]
     Active Substance: GABAPENTIN
  3. fluoroquinolone toxicity related supplements [Concomitant]

REACTIONS (4)
  - Nervous system disorder [None]
  - Muscle disorder [None]
  - Connective tissue disorder [None]
  - Tendon disorder [None]

NARRATIVE: CASE EVENT DATE: 20200406
